FAERS Safety Report 18015804 (Version 2)
Quarter: 2020Q3

REPORT INFORMATION
  Report Type: Spontaneous
  Country: US (occurrence: US)
  Receive Date: 20200713
  Receipt Date: 20200721
  Transmission Date: 20201103
  Serious: Yes (Hospitalization, Other)
  Sender: FDA-Public Use
  Company Number: US-PFIZER INC-2020265042

PATIENT
  Age: 16 Year
  Sex: Male

DRUGS (2)
  1. FENTANYL CITRATE. [Suspect]
     Active Substance: FENTANYL CITRATE
     Dosage: 3?4 FAKE OXYCODONE 10?325MG PILLS
     Route: 048
  2. OXYCODONE [Suspect]
     Active Substance: OXYCODONE
     Dosage: 3?4 FAKE OXYCODONE 10?325 MG PILLS
     Route: 048

REACTIONS (11)
  - Blood creatine phosphokinase increased [Recovered/Resolved]
  - White matter lesion [Recovering/Resolving]
  - Neurotoxicity [Recovering/Resolving]
  - Respiratory depression [Recovered/Resolved]
  - Intentional overdose [Recovering/Resolving]
  - Basal ganglion degeneration [Not Recovered/Not Resolved]
  - Counterfeit product administered [Recovering/Resolving]
  - Lethargy [Unknown]
  - Hyperintensity in brain deep nuclei [Recovering/Resolving]
  - Unresponsive to stimuli [Recovered/Resolved]
  - Leukoencephalopathy [Recovering/Resolving]
